FAERS Safety Report 8594579 (Version 2)
Quarter: 2012Q4

REPORT INFORMATION
  Report Type: 
  Country: US (occurrence: US)
  Receive Date: 20120604
  Receipt Date: 20120910
  Transmission Date: 20130627
  Serious: Yes (Congenital Anomaly)
  Sender: FDA-Public Use
  Company Number: US-GLAXOSMITHKLINE-A0979812A

PATIENT
  Age: 0 Year
  Sex: Male

DRUGS (4)
  1. PAXIL [Suspect]
     Indication: PRODUCT USED FOR UNKNOWN INDICATION
     Dosage: 20MG Per day
     Route: 064
  2. ATENOLOL [Concomitant]
     Route: 064
     Dates: end: 20010424
  3. LABETALOL [Concomitant]
  4. NATAL VITAMINS [Concomitant]

REACTIONS (4)
  - Cardiac murmur [Unknown]
  - Atrial septal defect [Unknown]
  - Tricuspid valve incompetence [Unknown]
  - Foetal exposure during pregnancy [Unknown]
